FAERS Safety Report 8026434-4 (Version None)
Quarter: 2012Q1

REPORT INFORMATION
  Report Type: 
  Country: None (occurrence: None)
  Receive Date: 20120105
  Receipt Date: 20111227
  Transmission Date: 20120608
  Serious: Yes (Other)
  Sender: FDA-Public Use
  Company Number: US-ASTRAZENECA-2011SE78586

PATIENT
  Age: 55 Year
  Sex: Female

DRUGS (27)
  1. MICARDIS [Concomitant]
  2. ZOLOFT [Concomitant]
     Route: 048
     Dates: start: 20110719
  3. ULTRAM [Concomitant]
     Dosage: 50 MG EVERY SIX HOURS AS NEEDED
     Route: 048
     Dates: start: 20110804
  4. CETIRIZINE HCL [Concomitant]
     Dates: start: 20080221
  5. AMITRIPTYLINE HCL [Concomitant]
     Dates: start: 20100916
  6. HYDROCHLOROTHIAZIDE [Concomitant]
     Dates: start: 20080221
  7. CYCLOBENZAPRINE HCL [Concomitant]
     Dosage: 10 MG AT BED TIME AS NEEDED
     Dates: start: 20100803
  8. METFORMIN HCL [Concomitant]
     Route: 048
     Dates: start: 20110804
  9. K-TAB [Concomitant]
     Dates: start: 20100506
  10. ALLEGRA [Concomitant]
  11. ULTRAM [Concomitant]
     Indication: PAIN
     Dosage: 50 MG EVERY SIX HOURS AS NEEDED
     Route: 048
     Dates: start: 20080221
  12. PLAVIX [Concomitant]
     Dates: start: 20110222
  13. FELDENE [Concomitant]
  14. PRAVACHOL [Concomitant]
  15. PREVACID [Concomitant]
  16. BISOPROLOL FUMARATE [Concomitant]
     Route: 048
     Dates: start: 20110524
  17. CLONIDINE HCL [Concomitant]
     Dosage: 0.1 MG TABLET IN THE MORNING, ONE TABLET IN THE MIDDAY AND ONE AT NIGHT
     Dates: start: 20080612
  18. ASPIRIN [Concomitant]
     Dates: start: 20100624
  19. TIAZAC [Concomitant]
     Route: 048
     Dates: start: 20110719
  20. PRAVASTATIN SODIUM [Concomitant]
     Dates: start: 20080221
  21. NITROGLYCERIN [Concomitant]
     Indication: CHEST PAIN
     Dosage: AS NEEDED EVERY 5 MINUTES UPTO 3 DOSES
     Route: 060
     Dates: start: 20110616
  22. LISINOPRIL [Suspect]
     Route: 048
     Dates: start: 20080221
  23. IMDUR [Concomitant]
     Route: 048
     Dates: start: 20110719
  24. PROCARDIA XL [Concomitant]
  25. FERROUS SULFATE TAB [Concomitant]
     Route: 048
     Dates: start: 20110616
  26. NORVASC [Concomitant]
     Dates: start: 20100916
  27. DICYCLOMINE [Concomitant]
     Dates: start: 20080221

REACTIONS (11)
  - CARTILAGE INJURY [None]
  - ARTHRITIS [None]
  - STAPHYLOCOCCAL INFECTION [None]
  - HYPOTENSION [None]
  - TRANSIENT ISCHAEMIC ATTACK [None]
  - LOWER LIMB FRACTURE [None]
  - THYROID NEOPLASM [None]
  - CARDIAC DISORDER [None]
  - HYPOAESTHESIA [None]
  - ANXIETY [None]
  - DEPRESSION [None]
